FAERS Safety Report 14583608 (Version 2)
Quarter: 2018Q2

REPORT INFORMATION
  Report Type: Spontaneous
  Country: FR (occurrence: FR)
  Receive Date: 20180228
  Receipt Date: 20180420
  Transmission Date: 20180711
  Serious: Yes (Other)
  Sender: FDA-Public Use
  Company Number: FR-PFIZER INC-2018078091

PATIENT
  Age: 75 Year
  Sex: Male
  Weight: 59 kg

DRUGS (1)
  1. PACLITAXEL. [Suspect]
     Active Substance: PACLITAXEL
     Indication: ADENOCARCINOMA GASTRIC
     Dosage: 80 MG/M2, UNK
     Route: 042
     Dates: start: 20170601, end: 20170921

REACTIONS (3)
  - Hepatocellular injury [Recovered/Resolved with Sequelae]
  - Cholestasis [Recovered/Resolved]
  - Product use in unapproved indication [Unknown]

NARRATIVE: CASE EVENT DATE: 20170601
